FAERS Safety Report 8741801 (Version 2)
Quarter: 2013Q4

REPORT INFORMATION
  Report Type: Spontaneous
  Country: US (occurrence: US)
  Receive Date: 20120824
  Receipt Date: 20131101
  Transmission Date: 20140711
  Serious: No
  Sender: FDA-Public Use
  Company Number: US-009507513-1208USA008730

PATIENT
  Age: 49 Year
  Sex: Male

DRUGS (2)
  1. PEGINTRON [Suspect]
     Dosage: UNK
     Route: 058
     Dates: start: 20120817, end: 20120819
  2. REBETOL [Suspect]

REACTIONS (6)
  - Muscle spasms [Recovering/Resolving]
  - Abdominal pain [Recovering/Resolving]
  - Nausea [Recovered/Resolved]
  - Vomiting [Recovered/Resolved]
  - Oral mucosal blistering [Recovering/Resolving]
  - Lip blister [Recovering/Resolving]
